FAERS Safety Report 17492563 (Version 1)
Quarter: 2020Q1

REPORT INFORMATION
  Report Type: Not Available
  Country: CA (occurrence: CA)
  Receive Date: 20200303
  Receipt Date: 20200303
  Transmission Date: 20200409
  Serious: Yes (Hospitalization, Other)
  Sender: FDA-Public Use
  Company Number: CA-CELGENEUS-CAN-20200210192

PATIENT
  Age: 65 Year
  Sex: Male

DRUGS (8)
  1. REVLIMID [Suspect]
     Active Substance: LENALIDOMIDE
     Indication: AUTOLOGOUS HAEMATOPOIETIC STEM CELL TRANSPLANT
     Dosage: 5 MILLIGRAM FOR 6 YEARS
     Route: 048
  2. REVLIMID [Suspect]
     Active Substance: LENALIDOMIDE
     Indication: BONE MARROW CONDITIONING REGIMEN
     Dosage: 5 MILLIGRAM
     Route: 048
  3. ELIQUIS [Concomitant]
     Active Substance: APIXABAN
     Route: 065
  4. BUSULFEX [Suspect]
     Active Substance: BUSULFAN
     Indication: AUTOLOGOUS HAEMATOPOIETIC STEM CELL TRANSPLANT
     Dosage: 210 MILLIGRAM
     Route: 041
  5. ELIQUIS [Concomitant]
     Active Substance: APIXABAN
     Indication: PRODUCT USED FOR UNKNOWN INDICATION
     Route: 065
  6. BUSULFEX [Suspect]
     Active Substance: BUSULFAN
     Indication: BONE MARROW CONDITIONING REGIMEN
     Route: 065
  7. MELPHALAN. [Suspect]
     Active Substance: MELPHALAN
     Indication: AUTOLOGOUS HAEMATOPOIETIC STEM CELL TRANSPLANT
     Route: 065
  8. MELPHALAN. [Suspect]
     Active Substance: MELPHALAN
     Indication: BONE MARROW CONDITIONING REGIMEN
     Dosage: 250 MILLIGRAM
     Route: 041

REACTIONS (2)
  - Cholecystitis infective [Not Recovered/Not Resolved]
  - Cholelithiasis [Not Recovered/Not Resolved]
